FAERS Safety Report 7583170-6 (Version None)
Quarter: 2011Q2

REPORT INFORMATION
  Report Type: 
  Country: None (occurrence: None)
  Receive Date: 20110627
  Receipt Date: 20110627
  Transmission Date: 20111010
  Serious: Yes (Hospitalization)
  Sender: FDA-Public Use
  Company Number: None

PATIENT
  Sex: Male
  Weight: 61 kg

DRUGS (8)
  1. CYTARABINE [Suspect]
     Dosage: 1060 MG
     Dates: end: 20110401
  2. CYCLOPHOSPHAMIDE [Suspect]
     Dosage: 176 MG
     Dates: end: 20110318
  3. DAUNORUBICIN HCL [Suspect]
     Dosage: 133 MG
     Dates: end: 20110304
  4. ONCASPAR [Suspect]
     Dosage: 8800 MG
     Dates: end: 20110405
  5. VINCRISTINE SULFATE [Suspect]
     Dosage: 4 MG
     Dates: end: 20110404
  6. THIOGUANINE [Suspect]
     Dosage: 1440 MG
     Dates: end: 20110404
  7. DEXAMETHASONE [Suspect]
     Dosage: 45 MG
     Dates: end: 20110310
  8. METHOTREXATE [Suspect]
     Dosage: 45 MG
     Dates: end: 20110329

REACTIONS (4)
  - HYPOPHAGIA [None]
  - DEHYDRATION [None]
  - VOMITING [None]
  - HYPERGLYCAEMIA [None]
